FAERS Safety Report 20506202 (Version 1)
Quarter: 2022Q1

REPORT INFORMATION
  Report Type: Spontaneous
  Country: US (occurrence: US)
  Receive Date: 20220223
  Receipt Date: 20220223
  Transmission Date: 20220424
  Serious: No
  Sender: FDA-Public Use
  Company Number: US-SA-SAC20220217000633

PATIENT
  Age: 26 Year
  Sex: Female

DRUGS (10)
  1. DUPIXENT [Suspect]
     Active Substance: DUPILUMAB
     Indication: Illness
     Dosage: 600 MG, 1X
     Route: 058
     Dates: end: 202109
  2. DUPIXENT [Suspect]
     Active Substance: DUPILUMAB
     Dosage: 300 MG, QOW
     Route: 058
  3. DUPIXENT [Suspect]
     Active Substance: DUPILUMAB
     Dosage: 600 MG, 1X
     Route: 058
     Dates: start: 20220126, end: 20220126
  4. DUPIXENT [Suspect]
     Active Substance: DUPILUMAB
     Dosage: 300 MG, QOW
     Route: 058
  5. EUCERIN [SALICYLIC ACID] [Concomitant]
  6. MUPIROCIN [Concomitant]
     Active Substance: MUPIROCIN
  7. VITAMIN C [Concomitant]
     Active Substance: ASCORBIC ACID
  8. VITAMIN D3 [Concomitant]
     Active Substance: CHOLECALCIFEROL
     Dosage: 400 GTT DROPS
  9. IRON [Concomitant]
     Active Substance: IRON
     Dosage: 45 MG
  10. KYLEENA [Concomitant]
     Active Substance: LEVONORGESTREL
     Dosage: 24 IU

REACTIONS (1)
  - Diarrhoea [Recovered/Resolved]
